FAERS Safety Report 15251393 (Version 2)
Quarter: 2018Q3

REPORT INFORMATION
  Report Type: Spontaneous
  Country: US (occurrence: US)
  Receive Date: 20180807
  Receipt Date: 20180813
  Transmission Date: 20181010
  Serious: No
  Sender: FDA-Public Use
  Company Number: US-PFIZER INC-2018316024

PATIENT
  Age: 69 Year
  Sex: Female
  Weight: 108.86 kg

DRUGS (2)
  1. ADVIL [Suspect]
     Active Substance: IBUPROFEN
     Dosage: 3 EVERY 6 HOURS
     Route: 048
  2. ADVIL [Suspect]
     Active Substance: IBUPROFEN
     Indication: TOOTHACHE
     Dosage: 3 EVERY 6 HOURS
     Route: 048

REACTIONS (7)
  - Purpura [Unknown]
  - Urticaria [Not Recovered/Not Resolved]
  - Pruritus [Not Recovered/Not Resolved]
  - Intentional overdose [Unknown]
  - Breast pain [Unknown]
  - Rash papular [Not Recovered/Not Resolved]
  - Feeling abnormal [Unknown]
